FAERS Safety Report 5483334-1 (Version None)
Quarter: 2007Q4

REPORT INFORMATION
  Report Type: 
  Country: None (occurrence: None)
  Receive Date: 20071012
  Receipt Date: 20071008
  Transmission Date: 20080405
  Serious: Yes (Death)
  Sender: FDA-Public Use
  Company Number: PHBS2007BR16741

PATIENT
  Age: 46 Year
  Sex: Male

DRUGS (3)
  1. CICLOSPORIN [Suspect]
     Indication: HEART TRANSPLANT
     Dosage: 210 MG/D
     Route: 065
  2. PREDNISONE [Suspect]
     Indication: HEART TRANSPLANT
     Dosage: 20 MG/D
     Route: 065
  3. MYCOPHENOLATE MOFETIL [Suspect]
     Indication: HEART TRANSPLANT
     Dosage: 2 G/D
     Route: 065

REACTIONS (16)
  - AMERICAN TRYPANOSOMIASIS [None]
  - BRAIN MASS [None]
  - CEREBRAL HAEMATOMA [None]
  - COMPUTERISED TOMOGRAM ABNORMAL [None]
  - CSF PROTEIN DECREASED [None]
  - DYSARTHRIA [None]
  - DYSPHAGIA [None]
  - ENCEPHALITIS [None]
  - HEADACHE [None]
  - HEMIPARESIS [None]
  - INTRACRANIAL PRESSURE INCREASED [None]
  - NERVOUS SYSTEM DISORDER [None]
  - NUCLEAR MAGNETIC RESONANCE IMAGING ABNORMAL [None]
  - PARTIAL SEIZURES [None]
  - PLEOCYTOSIS [None]
  - PROCEDURAL SITE REACTION [None]
